FAERS Safety Report 8592654-3 (Version None)
Quarter: 2012Q3

REPORT INFORMATION
  Report Type: 
  Country: None (occurrence: None)
  Receive Date: 20120814
  Receipt Date: 20120808
  Transmission Date: 20120928
  Serious: Yes (Other)
  Sender: FDA-Public Use
  Company Number: US-VERTEX PHARMACEUTICALS INC.-AE-2012-012027

PATIENT

DRUGS (3)
  1. RIBAVIRIN [Concomitant]
     Indication: HEPATITIS C
  2. INCIVEK [Suspect]
     Indication: HEPATITIS C
     Route: 048
     Dates: end: 20120401
  3. PEGASYS [Concomitant]
     Indication: HEPATITIS C

REACTIONS (6)
  - INSOMNIA [None]
  - BLISTER [None]
  - ANORECTAL DISCOMFORT [None]
  - RASH GENERALISED [None]
  - ALOPECIA [None]
  - ANAL PRURITUS [None]
